FAERS Safety Report 6815581-8 (Version None)
Quarter: 2010Q3

REPORT INFORMATION
  Report Type: 
  Country: None (occurrence: None)
  Receive Date: 20100702
  Receipt Date: 20100624
  Transmission Date: 20110219
  Serious: Yes (Hospitalization)
  Sender: FDA-Public Use
  Company Number: KP-WATSON-2010-08781

PATIENT
  Age: 39 Year
  Sex: Female

DRUGS (6)
  1. LIDOCAINE 1% W/ EPINEPHRINE 1:200,000 [Suspect]
     Indication: MESOTHERAPY
     Dosage: UNK
     Route: 058
  2. FLUOXETINE [Suspect]
     Indication: OBESITY
  3. AMINOPHYLLINE [Suspect]
     Indication: MESOTHERAPY
     Dosage: UNK
     Route: 058
  4. ANHYDROUS CAFFEINE [Suspect]
     Indication: OBESITY
     Dosage: 50 MG, DAILY
  5. GREEN TEA POWDER [Suspect]
     Indication: OBESITY
     Dosage: 250 MG, DAILY
  6. EPHEDRINE HYDROCHLORIDE [Suspect]
     Indication: OBESITY
     Dosage: 10 MG, DAILY

REACTIONS (1)
  - COLITIS ISCHAEMIC [None]
